FAERS Safety Report 25658466 (Version 1)
Quarter: 2025Q3

REPORT INFORMATION
  Report Type: Spontaneous
  Country: JP (occurrence: JP)
  Receive Date: 20250808
  Receipt Date: 20250808
  Transmission Date: 20251020
  Serious: Yes (Other)
  Sender: CHEPLAPHARM
  Company Number: JP-CP_KK-2025JP004411

PATIENT
  Age: 81 Year
  Sex: Male

DRUGS (1)
  1. HYDROXYUREA [Suspect]
     Active Substance: HYDROXYUREA
     Indication: Product used for unknown indication

REACTIONS (1)
  - Pneumonia [Recovered/Resolved]
